FAERS Safety Report 24893732 (Version 1)
Quarter: 2025Q1

REPORT INFORMATION
  Report Type: Spontaneous
  Country: DE (occurrence: DE)
  Receive Date: 20250128
  Receipt Date: 20250128
  Transmission Date: 20250408
  Serious: Yes (Hospitalization)
  Sender: JOHNSON AND JOHNSON
  Company Number: DE-BAYER-2025A010778

PATIENT
  Age: 85 Year
  Sex: Male

DRUGS (1)
  1. RIVAROXABAN [Suspect]
     Active Substance: RIVAROXABAN
     Indication: Atrial fibrillation

REACTIONS (7)
  - Cardiac arrest [Unknown]
  - Benign prostatic hyperplasia [Unknown]
  - Loss of consciousness [Unknown]
  - Internal haemorrhage [Unknown]
  - Haemorrhage urinary tract [Unknown]
  - Malaise [Unknown]
  - Product dose omission issue [Unknown]

NARRATIVE: CASE EVENT DATE: 20241101
